FAERS Safety Report 13451914 (Version 1)
Quarter: 2017Q2

REPORT INFORMATION
  Report Type: Spontaneous
  Country: None (occurrence: US)
  Receive Date: 20170414
  Receipt Date: 20170414
  Transmission Date: 20170830
  Serious: No
  Sender: FDA-Public Use
  Company Number: None

PATIENT
  Age: 37 Year
  Sex: Female

DRUGS (1)
  1. C-PROGESTERONE IN ETHYL OLEATE 50MG/ML MPT [Suspect]
     Active Substance: PROGESTERONE
     Indication: PREGNANCY
     Route: 030
     Dates: start: 20170328, end: 20170413

REACTIONS (2)
  - Injection site warmth [None]
  - Injection site pruritus [None]

NARRATIVE: CASE EVENT DATE: 20170413
